FAERS Safety Report 12640234 (Version 1)
Quarter: 2016Q3

REPORT INFORMATION
  Report Type: Spontaneous
  Country: US (occurrence: None)
  Receive Date: 20160809
  Receipt Date: 20160809
  Transmission Date: 20161109
  Serious: Yes (Hospitalization)
  Sender: FDA-Public Use
  Company Number: None

PATIENT
  Age: 51 Year
  Sex: Male
  Weight: 83.4 kg

DRUGS (1)
  1. CANAGLIFOZIN, 300 MG [Suspect]
     Active Substance: CANAGLIFLOZIN
     Route: 048

REACTIONS (4)
  - Diarrhoea [None]
  - Dehydration [None]
  - Hyperkalaemia [None]
  - Acute kidney injury [None]

NARRATIVE: CASE EVENT DATE: 20150816
